FAERS Safety Report 5520623-6 (Version None)
Quarter: 2007Q4

REPORT INFORMATION
  Report Type: 
  Country: None (occurrence: None)
  Receive Date: 20071119
  Receipt Date: 20071106
  Transmission Date: 20080405
  Serious: Yes (Hospitalization, Other)
  Sender: FDA-Public Use
  Company Number: TR-PFIZER INC-2007088134

PATIENT
  Sex: Female
  Weight: 78 kg

DRUGS (10)
  1. PREGABALIN [Suspect]
     Indication: PARAPLEGIA
     Route: 048
     Dates: start: 20070917, end: 20070924
  2. PREGABALIN [Suspect]
     Indication: NEUROPATHY PERIPHERAL
  3. PREGABALIN [Suspect]
     Indication: MYELITIS TRANSVERSE
  4. LANSOPRAZOLE [Concomitant]
  5. CITALOPRAM [Concomitant]
  6. SERTRALINE [Concomitant]
  7. CALCIUM WITH VITAMIN D [Concomitant]
  8. DEFLAZACORT [Concomitant]
  9. METHYLPREDNISOLONE [Concomitant]
  10. ESCITALOPRAM [Concomitant]

REACTIONS (3)
  - ERYTHEMA MULTIFORME [None]
  - STEVENS-JOHNSON SYNDROME [None]
  - TOXIC EPIDERMAL NECROLYSIS [None]
